FAERS Safety Report 13196416 (Version 1)
Quarter: 2017Q1

REPORT INFORMATION
  Report Type: Report from Study
  Country: CA (occurrence: CA)
  Receive Date: 20170208
  Receipt Date: 20170208
  Transmission Date: 20170428
  Serious: Yes (Other)
  Sender: FDA-Public Use
  Company Number: CA-AMGEN-CANSL2017018228

PATIENT
  Age: 70 Year
  Sex: Female

DRUGS (5)
  1. PROLIA [Suspect]
     Active Substance: DENOSUMAB
     Indication: OSTEOPOROSIS
     Dosage: UNK
     Route: 065
  2. VITAMIN D3 [Concomitant]
     Active Substance: CHOLECALCIFEROL
     Dosage: 3000 IU, QD
  3. CALCIUM CITRATE [Concomitant]
     Active Substance: CALCIUM CITRATE
     Dosage: 1000 MG, QD
  4. MULTIVITAMIN [Concomitant]
     Active Substance: VITAMINS
  5. OMEGA 3 [Concomitant]
     Active Substance: OMEGA-3 FATTY ACIDS

REACTIONS (7)
  - Urinary tract infection [Unknown]
  - Staphylococcal infection [Unknown]
  - Malaise [Unknown]
  - Hypersensitivity [Unknown]
  - Urticaria [Unknown]
  - Chest discomfort [Unknown]
  - Sinusitis [Unknown]

NARRATIVE: CASE EVENT DATE: 2016
